FAERS Safety Report 5382454-X (Version None)
Quarter: 2007Q3

REPORT INFORMATION
  Report Type: 
  Country: None (occurrence: None)
  Receive Date: 20070705
  Receipt Date: 20060928
  Transmission Date: 20080115
  Serious: Yes (Hospitalization)
  Sender: FDA-Public Use
  Company Number: WAES 0609USA08002

PATIENT
  Sex: Female

DRUGS (1)
  1. HYZAAR [Suspect]
     Dosage: 50-12.5 MG,BID,PO
     Route: 048

REACTIONS (2)
  - HYPOTENSION [None]
  - SYNCOPE [None]
